FAERS Safety Report 24248267 (Version 1)
Quarter: 2024Q3

REPORT INFORMATION
  Report Type: Spontaneous
  Country: GB (occurrence: GB)
  Receive Date: 20240826
  Receipt Date: 20240826
  Transmission Date: 20241016
  Serious: Yes (Other)
  Sender: AUROBINDO
  Company Number: GB-MHRA-MED-202408140853190720-DBCTY

PATIENT
  Sex: Male
  Weight: 95 kg

DRUGS (1)
  1. FLUCONAZOLE [Suspect]
     Active Substance: FLUCONAZOLE
     Indication: Adverse drug reaction
     Dosage: UNK
     Route: 065
     Dates: start: 20240805

REACTIONS (2)
  - Lip swelling [Not Recovered/Not Resolved]
  - Swelling face [Not Recovered/Not Resolved]

NARRATIVE: CASE EVENT DATE: 20240810
